FAERS Safety Report 25073201 (Version 1)
Quarter: 2025Q1

REPORT INFORMATION
  Report Type: Spontaneous
  Country: NL (occurrence: NL)
  Receive Date: 20250313
  Receipt Date: 20250313
  Transmission Date: 20250409
  Serious: Yes (Other)
  Sender: TEVA
  Company Number: None

PATIENT
  Age: 81 Year
  Sex: Female

DRUGS (5)
  1. TRAMADOL [Suspect]
     Active Substance: TRAMADOL
     Indication: Neuralgia
     Dosage: 1X EVERY 3 DAYS;?BRAND NAME NOT SPECIFIED
     Route: 048
     Dates: start: 20241023, end: 20241024
  2. Vitamin A and E [Concomitant]
     Indication: Product used for unknown indication
     Route: 065
     Dates: start: 2022
  3. CHOLECALCIFEROL [Concomitant]
     Active Substance: CHOLECALCIFEROL
     Indication: Product used for unknown indication
     Route: 065
     Dates: start: 2014
  4. FENTANYL [Suspect]
     Active Substance: FENTANYL
     Indication: Neuralgia
     Dosage: 1X EVERY 3 DAYS;?FENTANYL PLASTER 12UG/HOUR (SANDOZ/1A PHARMA) - NON-CURRENT DRUG / BRAND NAME NO...
     Route: 062
     Dates: start: 20241023, end: 20241024
  5. HYDROXOCOBALAMIN [Concomitant]
     Active Substance: HYDROXOCOBALAMIN
     Indication: Product used for unknown indication
     Route: 065
     Dates: start: 2014

REACTIONS (2)
  - Hallucination, visual [Recovered/Resolved]
  - Somnolence [Recovered/Resolved]

NARRATIVE: CASE EVENT DATE: 20241023
